FAERS Safety Report 6346991-3 (Version None)
Quarter: 2009Q3

REPORT INFORMATION
  Report Type: 
  Country: None (occurrence: None)
  Receive Date: 20090910
  Receipt Date: 20090903
  Transmission Date: 20100115
  Serious: Yes (Hospitalization)
  Sender: FDA-Public Use
  Company Number: GB-WYE-G04364009

PATIENT
  Age: 44 Year
  Sex: Male

DRUGS (5)
  1. EFFEXOR [Suspect]
     Indication: DEPRESSION
     Route: 048
     Dates: end: 20090517
  2. SALBUTAMOL [Concomitant]
     Indication: CHRONIC OBSTRUCTIVE PULMONARY DISEASE
     Dosage: 2DF, AS NECESSARY
     Route: 055
  3. OMEPRAZOLE [Concomitant]
     Indication: DUODENAL ULCER
     Route: 048
  4. EPILIM [Concomitant]
     Indication: EPILEPSY
     Dosage: 1000MG, FREQUENCY UNKNOWN
     Route: 048
  5. OLANZAPINE [Concomitant]
     Indication: SCHIZOPHRENIA
     Dosage: 15MG, FREQUENCY UNKNOWN
     Route: 048

REACTIONS (6)
  - ALCOHOLIC LIVER DISEASE [None]
  - BLOOD SODIUM DECREASED [None]
  - CHOLESTASIS [None]
  - FAECES PALE [None]
  - JAUNDICE [None]
  - URINE COLOUR ABNORMAL [None]
